FAERS Safety Report 5830419-3 (Version None)
Quarter: 2008Q3

REPORT INFORMATION
  Report Type: 
  Country: None (occurrence: None)
  Receive Date: 20080801
  Receipt Date: 20080723
  Transmission Date: 20090109
  Serious: Yes (Hospitalization, Other)
  Sender: FDA-Public Use
  Company Number: DE-JNJFOC-20080200898

PATIENT
  Sex: Male
  Weight: 48 kg

DRUGS (5)
  1. INFLIXIMAB, RECOMBINANT [Suspect]
     Route: 042
  2. INFLIXIMAB, RECOMBINANT [Suspect]
     Route: 042
  3. INFLIXIMAB, RECOMBINANT [Suspect]
     Indication: CROHN'S DISEASE
     Route: 042
  4. PREDNISONE [Concomitant]
     Indication: CROHN'S DISEASE
  5. METHOTREXATE [Concomitant]
     Indication: CROHN'S DISEASE

REACTIONS (2)
  - FISTULA [None]
  - INTESTINAL STENOSIS [None]
